FAERS Safety Report 10150867 (Version 1)
Quarter: 2014Q2

REPORT INFORMATION
  Report Type: Report from Study
  Country: BD (occurrence: BD)
  Receive Date: 20140502
  Receipt Date: 20140502
  Transmission Date: 20141212
  Serious: Yes (Death)
  Sender: FDA-Public Use
  Company Number: PHHY2014BD053089

PATIENT
  Age: 73 Year
  Sex: Male

DRUGS (1)
  1. EXELON PATCH [Suspect]
     Indication: DEMENTIA
     Dosage: 9.5 MG, DAILY (10 CM)
     Route: 062
     Dates: start: 201210, end: 20131226

REACTIONS (3)
  - Diabetes mellitus [Fatal]
  - Hypertension [Fatal]
  - Dementia [Fatal]
